FAERS Safety Report 6871155-4 (Version None)
Quarter: 2010Q3

REPORT INFORMATION
  Report Type: 
  Country: None (occurrence: None)
  Receive Date: 20100723
  Receipt Date: 20100713
  Transmission Date: 20110219
  Serious: Yes (Hospitalization, Other)
  Sender: FDA-Public Use
  Company Number: JP-ROCHE-704365

PATIENT
  Sex: Male

DRUGS (14)
  1. XELODA [Suspect]
     Indication: COLON CANCER RECURRENT
     Dosage: NOTE: 2 WEEKS ADMINISTRATION FOLLOWED BY 1 WEEK REST
     Route: 048
     Dates: start: 20100115, end: 20100310
  2. XELODA [Suspect]
     Dosage: NOTE: 2 WEEKS ADMINISTRATION FOLLOWED BY 1 WEEK REST
     Route: 048
     Dates: start: 20100409, end: 20100415
  3. AVASTIN [Suspect]
     Indication: COLON CANCER RECURRENT
     Dosage: NOTE: DOSAGE IS UNCERTAIN
     Route: 041
     Dates: end: 20100415
  4. ELPLAT [Suspect]
     Indication: COLON CANCER RECURRENT
     Route: 041
     Dates: start: 20070702, end: 20091214
  5. ELPLAT [Suspect]
     Dosage: DOSAGE IS UNCERTAIN
     Route: 041
     Dates: end: 20100415
  6. URSO 250 [Concomitant]
     Dosage: DOSE FORM: PERORAL AGENT
     Route: 048
  7. MYSLEE [Concomitant]
     Route: 048
  8. PROTECADIN [Concomitant]
     Route: 048
  9. PYDOXAL [Concomitant]
     Route: 048
     Dates: start: 20100115, end: 20100427
  10. MUCOSOLVAN [Concomitant]
     Dosage: DRUG: AMBROXOL HYDROCHLORIDE
     Route: 048
  11. CLARITIN [Concomitant]
     Route: 048
  12. MICARDIS [Concomitant]
     Route: 048
     Dates: start: 20090108, end: 20100427
  13. NORVASC [Concomitant]
     Route: 048
     Dates: start: 20090108, end: 20100427
  14. FLUITRAN [Concomitant]
     Route: 048
     Dates: start: 20090108, end: 20100427

REACTIONS (10)
  - ASCITES [None]
  - BLOOD ALBUMIN DECREASED [None]
  - BLOOD URINE PRESENT [None]
  - ECZEMA [None]
  - EPISTAXIS [None]
  - OEDEMA [None]
  - PROTEIN URINE [None]
  - PURPURA [None]
  - RASH [None]
  - RENAL FAILURE ACUTE [None]
